FAERS Safety Report 17169016 (Version 2)
Quarter: 2019Q4

REPORT INFORMATION
  Report Type: Spontaneous
  Country: BR (occurrence: BR)
  Receive Date: 20191218
  Receipt Date: 20191219
  Transmission Date: 20200122
  Serious: Yes (Other)
  Sender: FDA-Public Use
  Company Number: BR-JNJFOC-20191219660

PATIENT

DRUGS (1)
  1. TYLENOL [Suspect]
     Active Substance: ACETAMINOPHEN
     Indication: PRODUCT USED FOR UNKNOWN INDICATION
     Route: 064

REACTIONS (6)
  - Disability [Unknown]
  - Autism spectrum disorder [Unknown]
  - Attention deficit/hyperactivity disorder [Unknown]
  - Asthma [Unknown]
  - Nervous system disorder [Unknown]
  - Foetal exposure during pregnancy [Unknown]
